FAERS Safety Report 9289897 (Version 1)
Quarter: 2013Q2

REPORT INFORMATION
  Report Type: Report from Study
  Country: AR (occurrence: AR)
  Receive Date: 20130515
  Receipt Date: 20130515
  Transmission Date: 20140414
  Serious: Yes (Other)
  Sender: FDA-Public Use
  Company Number: PHHY2013AR047677

PATIENT
  Sex: Female

DRUGS (1)
  1. DIOVAN D [Suspect]
     Indication: BLOOD PRESSURE ABNORMAL
     Dosage: 1 DF (160/12.5MG), UKN
     Route: 048
     Dates: start: 2012

REACTIONS (3)
  - Fall [Recovering/Resolving]
  - Pelvic fracture [Recovering/Resolving]
  - Local swelling [Recovered/Resolved]
